FAERS Safety Report 5764769-6 (Version None)
Quarter: 2008Q2

REPORT INFORMATION
  Report Type: 
  Country: None (occurrence: None)
  Receive Date: 20080611
  Receipt Date: 20080602
  Transmission Date: 20081010
  Serious: Yes (Other)
  Sender: FDA-Public Use
  Company Number: PHHY2008CA10114

PATIENT
  Sex: Male

DRUGS (1)
  1. EXJADE [Suspect]
     Dosage: 1750 MG
     Route: 048
     Dates: start: 20071009

REACTIONS (3)
  - BLOOD URINE PRESENT [None]
  - EYE DISORDER [None]
  - RENAL IMPAIRMENT [None]
